FAERS Safety Report 6112252-0 (Version None)
Quarter: 2009Q1

REPORT INFORMATION
  Report Type: 
  Country: None (occurrence: None)
  Receive Date: 20090310
  Receipt Date: 20090306
  Transmission Date: 20090719
  Serious: Yes (Death)
  Sender: FDA-Public Use
  Company Number: 2009SP005034

PATIENT
  Age: 58 Year
  Sex: Female
  Weight: 45 kg

DRUGS (1)
  1. TEMODAL [Suspect]
     Indication: ASTROCYTOMA MALIGNANT
     Dosage: 100 MG; PO
     Route: 048
     Dates: start: 20071119, end: 20080301

REACTIONS (1)
  - COMPLETED SUICIDE [None]
